FAERS Safety Report 7578138-X (Version None)
Quarter: 2011Q2

REPORT INFORMATION
  Report Type: 
  Country: None (occurrence: None)
  Receive Date: 20110628
  Receipt Date: 20110616
  Transmission Date: 20111010
  Serious: Yes (Death)
  Sender: FDA-Public Use
  Company Number: A0872745A

PATIENT
  Age: 67 Year
  Sex: Male

DRUGS (4)
  1. CHEMOTHERAPY [Suspect]
  2. PROMACTA [Suspect]
     Dosage: 50MG PER DAY
     Route: 048
     Dates: start: 20100609
  3. AMITRIPTYLINE HCL [Concomitant]
  4. EYE DROPS [Concomitant]

REACTIONS (5)
  - INSOMNIA [None]
  - RASH [None]
  - PLATELET COUNT DECREASED [None]
  - DEATH [None]
  - FATIGUE [None]
